FAERS Safety Report 8036416-4 (Version None)
Quarter: 2012Q1

REPORT INFORMATION
  Report Type: 
  Country: None (occurrence: None)
  Receive Date: 20120106
  Receipt Date: 20111222
  Transmission Date: 20120608
  Serious: Yes (Life-Threatening, Other)
  Sender: FDA-Public Use
  Company Number: 2011PV000065

PATIENT
  Age: 58 Year
  Sex: Male
  Weight: 88 kg

DRUGS (16)
  1. DULCOLAX [Concomitant]
  2. SERACTIL [Concomitant]
  3. LOVENOX [Concomitant]
  4. ZANTAC [Concomitant]
  5. DISLOBENE [Concomitant]
  6. DEPOCYT [Suspect]
     Indication: NEOPLASM
     Dosage: 50 MG; QOW; IT
     Dates: start: 20111116, end: 20111130
  7. HYDROMORPHONE HCL [Concomitant]
  8. MYCOSTATIN [Concomitant]
  9. DIPIDOLOR [Concomitant]
  10. NAVOBAN [Concomitant]
  11. FOLSAN [Concomitant]
  12. STRUCTOKABIVEN /05981101/ [Concomitant]
  13. CAL D VITA [Concomitant]
  14. PANTOLOC /012632204/ [Concomitant]
  15. KLYSMOL [Concomitant]
  16. SCOPOLAMINE [Concomitant]

REACTIONS (15)
  - DISORIENTATION [None]
  - HALLUCINATION [None]
  - SPEECH DISORDER [None]
  - BODY TEMPERATURE INCREASED [None]
  - VOMITING [None]
  - SOPOR [None]
  - ARACHNOIDITIS [None]
  - COMA [None]
  - RESTLESSNESS [None]
  - APHASIA [None]
  - GENERAL PHYSICAL CONDITION ABNORMAL [None]
  - ALTERED STATE OF CONSCIOUSNESS [None]
  - PLEOCYTOSIS [None]
  - APRAXIA [None]
  - HEMIPARESIS [None]
